FAERS Safety Report 22537526 (Version 1)
Quarter: 2023Q2

REPORT INFORMATION
  Report Type: Spontaneous
  Country: HK (occurrence: HK)
  Receive Date: 20230608
  Receipt Date: 20230608
  Transmission Date: 20230722
  Serious: Yes (Other)
  Sender: FDA-Public Use
  Company Number: HK-002147023-NVSC2023HK122222

PATIENT

DRUGS (1)
  1. RUXOLITINIB [Suspect]
     Active Substance: RUXOLITINIB
     Indication: Myelofibrosis
     Dosage: UNK
     Route: 065
     Dates: start: 201909

REACTIONS (4)
  - Cytopenia [Unknown]
  - Symptom recurrence [Unknown]
  - Splenomegaly [Unknown]
  - Fibrosis [Unknown]

NARRATIVE: CASE EVENT DATE: 20210101
